FAERS Safety Report 18387679 (Version 1)
Quarter: 2020Q4

REPORT INFORMATION
  Report Type: Spontaneous
  Country: ZA (occurrence: ZA)
  Receive Date: 20201015
  Receipt Date: 20201015
  Transmission Date: 20210114
  Serious: Yes (Death, Life-Threatening)
  Sender: FDA-Public Use
  Company Number: ZA-ROCHE-2695180

PATIENT
  Age: 47 Year
  Sex: Female

DRUGS (1)
  1. ACTILYSE [Suspect]
     Active Substance: ALTEPLASE
     Indication: ISCHAEMIC STROKE
     Route: 042
     Dates: start: 20200910

REACTIONS (3)
  - Haemorrhagic transformation stroke [Fatal]
  - Product administration error [Unknown]
  - Hypertension [Unknown]

NARRATIVE: CASE EVENT DATE: 20200910
